FAERS Safety Report 8348451-7 (Version None)
Quarter: 2012Q2

REPORT INFORMATION
  Report Type: 
  Country: None (occurrence: None)
  Receive Date: 20120509
  Receipt Date: 20120430
  Transmission Date: 20120825
  Serious: Yes (Death, Hospitalization)
  Sender: FDA-Public Use
  Company Number: US-ROCHE-1023643

PATIENT
  Sex: Female

DRUGS (1)
  1. CELLCEPT [Suspect]
     Indication: PRODUCT USED FOR UNKNOWN INDICATION

REACTIONS (9)
  - PLEURAL EFFUSION [None]
  - ACUTE RESPIRATORY FAILURE [None]
  - CARDIAC FAILURE ACUTE [None]
  - PNEUMONIA [None]
  - SEPTIC SHOCK [None]
  - METABOLIC ACIDOSIS [None]
  - METABOLIC ENCEPHALOPATHY [None]
  - DEATH [None]
  - RENAL FAILURE ACUTE [None]
